FAERS Safety Report 22517493 (Version 1)
Quarter: 2023Q2

REPORT INFORMATION
  Report Type: Spontaneous
  Country: CN (occurrence: CN)
  Receive Date: 20230603
  Receipt Date: 20230603
  Transmission Date: 20230721
  Serious: Yes (Hospitalization, Other)
  Sender: FDA-Public Use
  Company Number: CN-NOVITIUMPHARMA-2023CNNVP00811

PATIENT
  Age: 64 Year
  Sex: Male

DRUGS (4)
  1. ESTAZOLAM [Suspect]
     Active Substance: ESTAZOLAM
     Indication: Insomnia
     Route: 048
  2. ESTAZOLAM [Suspect]
     Active Substance: ESTAZOLAM
     Indication: Pain
  3. MORPHINE [Concomitant]
     Active Substance: MORPHINE
     Indication: Insomnia
     Dosage: 30-60MG SUSTAINED-RELEASE
     Route: 048
  4. MORPHINE [Concomitant]
     Active Substance: MORPHINE
     Indication: Pain

REACTIONS (8)
  - Drug interaction [Unknown]
  - Toxicity to various agents [Unknown]
  - Coma [Recovered/Resolved]
  - Hypotension [Recovering/Resolving]
  - Respiratory failure [Recovering/Resolving]
  - Renal impairment [Recovering/Resolving]
  - Liver injury [Recovering/Resolving]
  - Overdose [Unknown]
